FAERS Safety Report 5253562-9 (Version None)
Quarter: 2007Q1

REPORT INFORMATION
  Report Type: 
  Country: None (occurrence: None)
  Receive Date: 20061201
  Receipt Date: 20060808
  Transmission Date: 20070707
  Serious: No
  Sender: FDA-Public Use
  Company Number: 2006PV019049

PATIENT
  Age: 62 Year
  Sex: Female
  Weight: 113.3993 kg

DRUGS (7)
  1. BYETTA [Suspect]
     Indication: DIABETES MELLITUS NON-INSULIN-DEPENDENT
     Dosage: 5 MCG;BID;SC
     Route: 058
     Dates: start: 20060715
  2. LISINOPRIL [Suspect]
     Indication: DIABETES MELLITUS NON-INSULIN-DEPENDENT
     Dosage: 5 MCG;
     Dates: start: 20060715, end: 20060101
  3. LANTUS [Concomitant]
  4. ACTOS [Concomitant]
  5. GLYBURIDE AND METFORMIN HCL [Concomitant]
  6. ATACAND [Concomitant]
  7. SYNTHROID [Concomitant]

REACTIONS (5)
  - BLOOD GLUCOSE INCREASED [None]
  - DECREASED APPETITE [None]
  - HAEMOPTYSIS [None]
  - INFECTION [None]
  - NAUSEA [None]
